FAERS Safety Report 7869076-3 (Version None)
Quarter: 2011Q4

REPORT INFORMATION
  Report Type: 
  Country: None (occurrence: None)
  Receive Date: 20111028
  Receipt Date: 20101227
  Transmission Date: 20120403
  Serious: No
  Sender: FDA-Public Use
  Company Number: US-AMGEN-USASP2010011855

PATIENT
  Age: 62 Year
  Sex: Male

DRUGS (6)
  1. CALCIUM [Concomitant]
     Dosage: 500 UNK, UNK
  2. FISH OIL [Concomitant]
  3. FOLIC ACID [Concomitant]
     Dosage: 1 MG, UNK
  4. PREDNISONE [Concomitant]
     Dosage: 1 MG, UNK
  5. REMICADE [Concomitant]
  6. ENBREL [Suspect]
     Indication: PRODUCT USED FOR UNKNOWN INDICATION
     Dosage: 50 MG, QWK
     Route: 058

REACTIONS (1)
  - DRY MOUTH [None]
